FAERS Safety Report 8854406 (Version 2)
Quarter: 2012Q4

REPORT INFORMATION
  Report Type: Report from Study
  Country: US (occurrence: US)
  Receive Date: 20121023
  Receipt Date: 20121025
  Transmission Date: 20130627
  Serious: Yes (Death)
  Sender: FDA-Public Use
  Company Number: US-ROCHE-1147897

PATIENT
  Age: 53 Year
  Sex: Female

DRUGS (3)
  1. CAPECITABINE [Suspect]
     Indication: BREAST CANCER METASTATIC
     Route: 048
     Dates: start: 20120803, end: 20120901
  2. CAPECITABINE [Suspect]
     Route: 048
     Dates: start: 20120803, end: 20120901
  3. CAPECITABINE [Suspect]
     Route: 065
     Dates: end: 20111103

REACTIONS (2)
  - Breast cancer metastatic [Fatal]
  - Malaise [Unknown]
